FAERS Safety Report 5004316-X (Version None)
Quarter: 2006Q2

REPORT INFORMATION
  Report Type: 
  Country: None (occurrence: None)
  Receive Date: 20060517
  Receipt Date: 20051019
  Transmission Date: 20061013
  Serious: Yes (Hospitalization)
  Sender: FDA-Public Use
  Company Number: US-MERCK-0510USA08252

PATIENT
  Age: 54 Year
  Sex: Female
  Weight: 105 kg

DRUGS (25)
  1. VIOXX [Suspect]
     Indication: OSTEOARTHRITIS
     Route: 048
  2. VIOXX [Suspect]
     Route: 065
     Dates: start: 19990801, end: 20010709
  3. VIOXX [Suspect]
     Route: 065
     Dates: start: 20010709
  4. ASPIRIN [Concomitant]
     Route: 065
     Dates: start: 19970701
  5. ASPIRIN [Concomitant]
     Route: 048
     Dates: start: 19970701
  6. NEURONTIN [Concomitant]
     Route: 065
     Dates: start: 19990101, end: 20040101
  7. EFFEXOR XR [Concomitant]
     Route: 048
  8. ZOLOFT [Concomitant]
     Route: 065
  9. ULTRAM [Concomitant]
     Route: 065
  10. HYDROCHLOROTHIAZIDE [Concomitant]
     Route: 065
  11. ALTACE [Concomitant]
     Route: 065
  12. PREMARIN [Concomitant]
     Route: 065
     Dates: start: 19980101
  13. XANAX [Concomitant]
     Route: 048
  14. MONOPRIL [Concomitant]
     Route: 065
  15. METOPROLOL [Concomitant]
     Route: 065
  16. ELAVIL [Concomitant]
     Route: 065
     Dates: start: 19990101
  17. DETROL LA [Concomitant]
     Route: 065
  18. LIPITOR [Concomitant]
     Route: 065
  19. ALBUTEROL [Concomitant]
     Route: 065
  20. NITROGLYCERIN [Concomitant]
     Indication: CHEST PAIN
     Route: 065
     Dates: start: 20031101, end: 20050305
  21. PROTONIX [Concomitant]
     Route: 048
  22. DULCOLAX [Concomitant]
     Route: 065
  23. NATURAL BALANCE COLON CLENZ [Concomitant]
     Route: 065
  24. OXYBUTIN [Concomitant]
     Route: 048
  25. NAPROXEN [Concomitant]
     Route: 065
     Dates: start: 19980101, end: 20041130

REACTIONS (25)
  - ACUTE SINUSITIS [None]
  - ANOREXIA [None]
  - ARTHROPATHY [None]
  - ARTHROSCOPIC SURGERY [None]
  - BALANCE DISORDER [None]
  - CARDIAC FLUTTER [None]
  - CONSTIPATION [None]
  - DEEP VEIN THROMBOSIS [None]
  - DIVERTICULITIS [None]
  - DIZZINESS [None]
  - DYSPNOEA EXERTIONAL [None]
  - FACET JOINT SYNDROME [None]
  - FATIGUE [None]
  - GALLBLADDER DISORDER [None]
  - GASTROOESOPHAGEAL REFLUX DISEASE [None]
  - HYPERHIDROSIS [None]
  - NAUSEA [None]
  - OEDEMA [None]
  - PRESCRIBED OVERDOSE [None]
  - REFLUX OESOPHAGITIS [None]
  - SINUS BRADYCARDIA [None]
  - SINUSITIS [None]
  - SYNCOPE [None]
  - THROMBOSIS [None]
  - WEIGHT DECREASED [None]
